FAERS Safety Report 18085575 (Version 1)
Quarter: 2020Q3

REPORT INFORMATION
  Report Type: Spontaneous
  Country: US (occurrence: US)
  Receive Date: 20200728
  Receipt Date: 20200728
  Transmission Date: 20201103
  Serious: No
  Sender: FDA-Public Use
  Company Number: US-PERRIGO-20US007052

PATIENT

DRUGS (1)
  1. MINOXIDIL. [Suspect]
     Active Substance: MINOXIDIL
     Indication: PRODUCT USED FOR UNKNOWN INDICATION
     Dosage: UNKNOWN, UNKNOWN
     Route: 061
     Dates: start: 2020, end: 20200408

REACTIONS (4)
  - Application site pruritus [Recovered/Resolved]
  - Application site scab [Recovering/Resolving]
  - Application site dryness [Unknown]
  - Application site pain [Unknown]

NARRATIVE: CASE EVENT DATE: 2020
